FAERS Safety Report 10343490 (Version 1)
Quarter: 2014Q3

REPORT INFORMATION
  Report Type: Spontaneous
  Country: US (occurrence: US)
  Receive Date: 20140725
  Receipt Date: 20140725
  Transmission Date: 20150326
  Serious: Yes (Other)
  Sender: FDA-Public Use
  Company Number: US-ABBVIE-14P-163-1264069-00

PATIENT
  Sex: Male

DRUGS (1)
  1. ANDROGEL [Suspect]
     Active Substance: TESTOSTERONE
     Indication: BLOOD TESTOSTERONE DECREASED

REACTIONS (18)
  - Pain [Unknown]
  - Self-injurious ideation [Unknown]
  - Injury [Unknown]
  - Brain neoplasm [Unknown]
  - Dysarthria [Unknown]
  - Social problem [Unknown]
  - Physical disability [Unknown]
  - Emotional distress [Unknown]
  - Anxiety [Unknown]
  - Road traffic accident [Unknown]
  - Brain injury [Unknown]
  - Cerebral infarction [Unknown]
  - Anhedonia [Unknown]
  - Malaise [Unknown]
  - Loss of consciousness [Unknown]
  - Deformity [Unknown]
  - Fatigue [Unknown]
  - Economic problem [Unknown]

NARRATIVE: CASE EVENT DATE: 201108
